FAERS Safety Report 5032112-6 (Version None)
Quarter: 2006Q2

REPORT INFORMATION
  Report Type: 
  Country: None (occurrence: None)
  Receive Date: 20060619
  Receipt Date: 20060612
  Transmission Date: 20061013
  Serious: Yes (Life-Threatening, Other)
  Sender: FDA-Public Use
  Company Number: US-2006-012820

PATIENT
  Age: 67 Year
  Sex: Male
  Weight: 79 kg

DRUGS (1)
  1. MAGNEVIST [Suspect]
     Indication: NUCLEAR MAGNETIC RESONANCE IMAGING BRAIN
     Dosage: 18 ML, 1 DOSE, INTRAVENOUS
     Route: 042
     Dates: start: 20060516, end: 20060516

REACTIONS (9)
  - ANAPHYLACTIC REACTION [None]
  - COUGH [None]
  - CYANOSIS [None]
  - DYSPNOEA [None]
  - HYPOXIA [None]
  - MENTAL STATUS CHANGES [None]
  - RETCHING [None]
  - SNEEZING [None]
  - STRIDOR [None]
